FAERS Safety Report 8167381-7 (Version None)
Quarter: 2012Q1

REPORT INFORMATION
  Report Type: 
  Country: None (occurrence: None)
  Receive Date: 20120103
  Receipt Date: 20111109
  Transmission Date: 20120608
  Serious: No
  Sender: FDA-Public Use
  Company Number: AE-2011-002207

PATIENT
  Age: 60 Year
  Sex: Female
  Weight: 54.4316 kg

DRUGS (6)
  1. PERCOCET [Concomitant]
  2. AMBIEN [Concomitant]
  3. INCIVEK [Suspect]
     Dosage: 1125 MG (375 MG, 2 PO), ORAL
     Route: 048
     Dates: start: 20111005, end: 20111014
  4. PEGINTERFERON (PEGINTERFERON ALFA-2A) [Concomitant]
  5. RIBAVIRIN [Concomitant]
  6. OXYCONTIN [Concomitant]

REACTIONS (3)
  - FATIGUE [None]
  - RASH MACULO-PAPULAR [None]
  - PRURITUS [None]
